FAERS Safety Report 9031138 (Version 5)
Quarter: 2013Q4

REPORT INFORMATION
  Report Type: Spontaneous
  Country: PT (occurrence: PT)
  Receive Date: 20130123
  Receipt Date: 20131112
  Transmission Date: 20140711
  Serious: Yes (Death, Hospitalization, Other)
  Sender: FDA-Public Use
  Company Number: PT-BRISTOL-MYERS SQUIBB COMPANY-17234311

PATIENT
  Age: 42 Year
  Sex: Male

DRUGS (1)
  1. YERVOY [Suspect]
     Dosage: NO OF INF:4?LAST INF:13JAN2013
     Dates: start: 20121108

REACTIONS (5)
  - Convulsion [Fatal]
  - Coma [Fatal]
  - Cerebral haemorrhage [Unknown]
  - Fall [Unknown]
  - Metastases to central nervous system [Unknown]
